FAERS Safety Report 18368378 (Version 2)
Quarter: 2020Q4

REPORT INFORMATION
  Report Type: Spontaneous
  Country: CN (occurrence: CN)
  Receive Date: 20201009
  Receipt Date: 20201014
  Transmission Date: 20210114
  Serious: Yes (Hospitalization, Other)
  Sender: FDA-Public Use
  Company Number: CN-009507513-2010CHN001336

PATIENT
  Age: 66 Year
  Sex: Male
  Weight: 62 kg

DRUGS (4)
  1. ZOLEDRONIC ACID [Suspect]
     Active Substance: ZOLEDRONIC ACID
     Indication: BONE DISORDER
     Dosage: 4 MG ONCE
     Route: 041
     Dates: start: 20200812, end: 20200812
  2. KEYTRUDA [Suspect]
     Active Substance: PEMBROLIZUMAB
     Indication: LUNG NEOPLASM MALIGNANT
     Dosage: 200 MG QD (ONCE)
     Route: 041
     Dates: start: 20200904, end: 20200904
  3. SODIUM CHLORIDE. [Suspect]
     Active Substance: SODIUM CHLORIDE
     Indication: BONE DISORDER
     Dosage: 100 ML ONCE
     Route: 041
     Dates: start: 20200812, end: 20200812
  4. SODIUM CHLORIDE. [Suspect]
     Active Substance: SODIUM CHLORIDE
     Dosage: 100 MILLIGRAM
     Route: 041
     Dates: start: 20200904, end: 20200904

REACTIONS (5)
  - Fatigue [Unknown]
  - Decreased appetite [Unknown]
  - Hypocalcaemia [Unknown]
  - Abdominal pain upper [Unknown]
  - Hepatic function abnormal [Unknown]

NARRATIVE: CASE EVENT DATE: 202009
